FAERS Safety Report 24862835 (Version 1)
Quarter: 2025Q1

REPORT INFORMATION
  Report Type: Spontaneous
  Country: US (occurrence: US)
  Receive Date: 20250120
  Receipt Date: 20250120
  Transmission Date: 20250409
  Serious: No
  Sender: GLAXOSMITHKLINE
  Company Number: US-GSK-US2025AMR003636

PATIENT
  Sex: Female

DRUGS (3)
  1. IMITREX [Suspect]
     Active Substance: SUMATRIPTAN SUCCINATE
  2. RIZATRIPTAN [Concomitant]
     Active Substance: RIZATRIPTAN
     Indication: Product used for unknown indication
  3. Triptan [Concomitant]
     Indication: Product used for unknown indication

REACTIONS (1)
  - Overdose [Unknown]
